FAERS Safety Report 21147448 (Version 1)
Quarter: 2022Q3

REPORT INFORMATION
  Report Type: Spontaneous
  Country: US (occurrence: None)
  Receive Date: 20220728
  Receipt Date: 20220728
  Transmission Date: 20221027
  Serious: Yes (Death)
  Sender: FDA-Public Use
  Company Number: None

PATIENT
  Age: 24 Year
  Sex: Female
  Weight: 40.05 kg

DRUGS (4)
  1. ETANERCEPT [Suspect]
     Active Substance: ETANERCEPT
     Indication: Rheumatoid arthritis
     Dosage: OTHER FREQUENCY : WEEKLY;?
     Route: 058
     Dates: start: 20220721, end: 20220724
  2. norethindrine 5mg [Concomitant]
     Dates: end: 20220724
  3. SYNTHROID [Concomitant]
     Active Substance: LEVOTHYROXINE SODIUM
     Dates: end: 20220724
  4. PREDNISONE [Concomitant]
     Active Substance: PREDNISONE
     Dates: start: 20220510, end: 20220724

REACTIONS (5)
  - Intestinal ischaemia [None]
  - Rheumatoid arthritis [None]
  - Abdominal pain [None]
  - Acidosis [None]
  - Coagulopathy [None]

NARRATIVE: CASE EVENT DATE: 20220724
